FAERS Safety Report 4351338-8 (Version None)
Quarter: 2004Q2

REPORT INFORMATION
  Report Type: 
  Country: None (occurrence: None)
  Receive Date: 20040503
  Receipt Date: 20040420
  Transmission Date: 20050107
  Serious: Yes (Death, Hospitalization)
  Sender: FDA-Public Use
  Company Number: FR-JNJFOC-20040404508

PATIENT
  Age: 92 Year
  Sex: Female

DRUGS (3)
  1. REMINYL [Suspect]
     Route: 049
     Dates: start: 20030324, end: 20030604
  2. RISPERDAL [Suspect]
     Indication: DRUG USE FOR UNKNOWN INDICATION
     Route: 049
  3. SOTALEX [Suspect]
     Indication: DRUG USE FOR UNKNOWN INDICATION
     Route: 049

REACTIONS (4)
  - BRADYCARDIA [None]
  - CEREBROVASCULAR ACCIDENT [None]
  - COMA [None]
  - HYPONATRAEMIA [None]
